FAERS Safety Report 4411143-0 (Version None)
Quarter: 2004Q2

REPORT INFORMATION
  Report Type: 
  Country: None (occurrence: None)
  Receive Date: 20040630
  Receipt Date: 20040521
  Transmission Date: 20050107
  Serious: No
  Sender: FDA-Public Use
  Company Number: 03P-163-0241491-00

PATIENT
  Age: 68 Year
  Sex: Male
  Weight: 90.7194 kg

DRUGS (16)
  1. HUMIRA [Suspect]
     Indication: RHEUMATOID ARTHRITIS
     Dosage: 40 MG, 1 IN 2 WK, SUBCUTANEOUS; 40 MG, 1 IN 1 WK, SUBCUTANEOUS
     Route: 058
     Dates: start: 20031018, end: 20040112
  2. HUMIRA [Suspect]
     Indication: RHEUMATOID ARTHRITIS
     Dosage: 40 MG, 1 IN 2 WK, SUBCUTANEOUS; 40 MG, 1 IN 1 WK, SUBCUTANEOUS
     Route: 058
     Dates: start: 20040113
  3. METHOTREXATE [Concomitant]
  4. PREDNISONE TAB [Concomitant]
  5. ENALAPRIL MALEATE [Concomitant]
  6. CARVEDILOL [Concomitant]
  7. WARFARIN SODIUM [Concomitant]
  8. DIGOXIN [Concomitant]
  9. OMEPRAZOLE [Concomitant]
  10. SIMVASTATIN [Concomitant]
  11. CALCIUM [Concomitant]
  12. ACETYLSALICYLIC ACID SRT [Concomitant]
  13. CALCIUM WITH VITAMIN D [Concomitant]
  14. MULTIVITAMIN [Concomitant]
  15. TOCOPHEROL CONCENTRATE CAP [Concomitant]
  16. FOLIC ACID [Concomitant]

REACTIONS (7)
  - DRUG EFFECT DECREASED [None]
  - DRUG INEFFECTIVE [None]
  - EAR PAIN [None]
  - PAIN [None]
  - PAIN IN EXTREMITY [None]
  - PHARYNGOLARYNGEAL PAIN [None]
  - RHEUMATOID ARTHRITIS [None]
